FAERS Safety Report 16943102 (Version 1)
Quarter: 2019Q4

REPORT INFORMATION
  Report Type: Spontaneous
  Country: CN (occurrence: CN)
  Receive Date: 20191021
  Receipt Date: 20191021
  Transmission Date: 20200122
  Serious: Yes (Hospitalization, Other)
  Sender: FDA-Public Use
  Company Number: CN-BAXTER-2019BAX020434

PATIENT
  Age: 36 Year
  Sex: Female
  Weight: 41 kg

DRUGS (8)
  1. ENDOXAN [Suspect]
     Active Substance: CYCLOPHOSPHAMIDE
     Indication: BONE CANCER
     Dosage: CYCLOPHOSPHAMIDE+ NS 500 ML ON DAY 1-2
     Route: 041
     Dates: start: 20190908, end: 20190909
  2. 5% GLUCOSE  INJECTION [Suspect]
     Active Substance: DEXTROSE
     Dosage: DOXORUBICIN HYDROCHLORIDE LIPOSOME 20 MG + GS ON DAY 1
     Route: 041
     Dates: start: 20190908, end: 20190908
  3. DOXORUBICIN HYDROCHLORIDE LIPOSOME [Suspect]
     Active Substance: DOXORUBICIN HYDROCHLORIDE
     Dosage: DOXORUBICIN HYDROCHLORIDE LIPOSOME + GS 500 ML ON DAY 2
     Route: 041
     Dates: start: 20190909, end: 20190909
  4. XIAIKE [Suspect]
     Active Substance: VINDESINE
     Indication: BONE CANCER
     Dosage: VINDESINE + GS 500 ML ON DAY 1
     Route: 041
     Dates: start: 20190908, end: 20190908
  5. 5% GLUCOSE  INJECTION [Suspect]
     Active Substance: DEXTROSE
     Indication: MEDICATION DILUTION
     Dosage: VINDESINE 3.9 MG + GS ON DAY 1
     Route: 041
     Dates: start: 20190908, end: 20190908
  6. 5% GLUCOSE  INJECTION [Suspect]
     Active Substance: DEXTROSE
     Dosage: DOXORUBICIN HYDROCHLORIDE LIPOSOME 50 MG + GS ON DAY 2
     Route: 041
     Dates: start: 20190909, end: 20190909
  7. DOXORUBICIN HYDROCHLORIDE LIPOSOME [Suspect]
     Active Substance: DOXORUBICIN HYDROCHLORIDE
     Indication: BONE CANCER
     Dosage: DOXORUBICIN HYDROCHLORIDE LIPOSOME + GS 500 ML ON DAY 1
     Route: 041
     Dates: start: 20190908, end: 20190908
  8. 0.9% SODIUM CHLORIDE INJECTION [Suspect]
     Active Substance: SODIUM CHLORIDE
     Indication: MEDICATION DILUTION
     Dosage: CYCLOPHOSPHAMIDE FOR INJECTION 1 G + NS ON DAY 1-2
     Route: 041
     Dates: start: 20190908, end: 20190909

REACTIONS (1)
  - Bone marrow failure [Recovering/Resolving]

NARRATIVE: CASE EVENT DATE: 20190916
